FAERS Safety Report 5585553-2 (Version None)
Quarter: 2008Q1

REPORT INFORMATION
  Report Type: 
  Country: None (occurrence: None)
  Receive Date: 20080109
  Receipt Date: 20080103
  Transmission Date: 20080703
  Serious: Yes (Other)
  Sender: FDA-Public Use
  Company Number: B0360913A

PATIENT
  Age: 37 Year
  Sex: Female

DRUGS (3)
  1. PAROXETINE HYDROCHLORIDE [Suspect]
     Route: 065
     Dates: start: 19990127, end: 20031001
  2. DIAZEPAM [Concomitant]
     Route: 065
     Dates: start: 20020812
  3. PROZAC [Concomitant]
     Route: 065
     Dates: start: 19940110

REACTIONS (12)
  - ACROPHOBIA [None]
  - CRYING [None]
  - DEPRESSION [None]
  - DIZZINESS [None]
  - HEADACHE [None]
  - INSOMNIA [None]
  - NAUSEA [None]
  - NIGHT SWEATS [None]
  - NIGHTMARE [None]
  - PSYCHOTIC BEHAVIOUR [None]
  - TREMOR [None]
  - WITHDRAWAL SYNDROME [None]
